FAERS Safety Report 9173527 (Version 7)
Quarter: 2014Q4

REPORT INFORMATION
  Report Type: Spontaneous
  Country: US (occurrence: None)
  Receive Date: 20130314
  Receipt Date: 20141229
  Transmission Date: 20150529
  Serious: Yes (Hospitalization, Other)
  Sender: FDA-Public Use
  Company Number: JPI-P-030350

PATIENT
  Age: 68 Year
  Sex: Female
  Weight: 79.1 kg

DRUGS (13)
  1. HYDROCODONE [Concomitant]
     Active Substance: HYDROCODONE
  2. MODAFINIL. [Concomitant]
     Active Substance: MODAFINIL
  3. XYREM [Suspect]
     Active Substance: SODIUM OXYBATE
     Indication: HYPERSOMNIA
     Dosage: 4.5 GM (2.25 GM, 2 IN 1 D), ORAL
     Route: 048
     Dates: start: 20060621, end: 2008
  4. LITHIUM CARBONATE. [Suspect]
     Active Substance: LITHIUM CARBONATE
     Indication: DEPRESSION
     Route: 048
     Dates: start: 1997, end: 20130109
  5. PRAVASTATIN SODIUM. [Concomitant]
     Active Substance: PRAVASTATIN SODIUM
  6. LISINOPRIL. [Concomitant]
     Active Substance: LISINOPRIL
  7. FISH OIL [Concomitant]
     Active Substance: FISH OIL
  8. ASPIRIN. [Concomitant]
     Active Substance: ASPIRIN
  9. METHYLPHENIDATE HYDROCHLORIDE. [Concomitant]
     Active Substance: METHYLPHENIDATE HYDROCHLORIDE
  10. XYREM [Suspect]
     Active Substance: SODIUM OXYBATE
     Indication: NARCOLEPSY
     Dosage: 4.5 GM (2.25 GM, 2 IN 1 D), ORAL
     Route: 048
     Dates: start: 20060621, end: 2008
  11. MIXTARD HUMAN 70/30 [Concomitant]
     Active Substance: INSULIN HUMAN
  12. LITHIUM CARBONATE. [Suspect]
     Active Substance: LITHIUM CARBONATE
     Indication: BIPOLAR DISORDER
     Route: 048
     Dates: start: 1997, end: 20130109
  13. PREGABALIN. [Concomitant]
     Active Substance: PREGABALIN

REACTIONS (18)
  - Catheterisation cardiac [None]
  - Herpes zoster [None]
  - Corneal dystrophy [None]
  - Dysgraphia [None]
  - Fall [None]
  - Joint injury [None]
  - Feeling abnormal [None]
  - Contrast media reaction [None]
  - Arthropathy [None]
  - Cardiac murmur [None]
  - Disturbance in attention [None]
  - Toxicity to various agents [None]
  - Incorrect dose administered [None]
  - Basal cell carcinoma [None]
  - Arthralgia [None]
  - Renal failure [None]
  - Balance disorder [None]
  - Tremor [None]

NARRATIVE: CASE EVENT DATE: 2010
